FAERS Safety Report 14583382 (Version 2)
Quarter: 2018Q3

REPORT INFORMATION
  Report Type: Spontaneous
  Country: DE (occurrence: DE)
  Receive Date: 20180228
  Receipt Date: 20180720
  Transmission Date: 20181010
  Serious: Yes (Hospitalization)
  Sender: FDA-Public Use
  Company Number: DE-MYLANLABS-2018M1007685

PATIENT
  Age: 70 Year
  Sex: Female
  Weight: 66 kg

DRUGS (6)
  1. ACARIZAX [Suspect]
     Active Substance: DERMATOPHAGOIDES FARINAE\DERMATOPHAGOIDES PTERONYSSINUS
     Indication: DUST ALLERGY
     Dosage: 12 SQ?HDM (STANDARDIZED QUALITY (SQ) HOUSE DUST MITE), QD
     Route: 048
     Dates: start: 201701
  2. L?THYROX [Concomitant]
     Active Substance: LEVOTHYROXINE SODIUM
     Indication: PRODUCT USED FOR UNKNOWN INDICATION
     Dosage: 1 DF, UNK
  3. BUDESONIDE. [Concomitant]
     Active Substance: BUDESONIDE
     Indication: COUGH
     Dosage: UNK, BID
     Dates: start: 20180118, end: 20180118
  4. NOVOPULMON 200 NOVOLIZER, PULVER ZUR INHALATION [Suspect]
     Active Substance: BUDESONIDE
     Indication: COUGH
     Dosage: 200 ?G, IN THE MORNING AND IN THE EVENING
     Dates: start: 20180118, end: 20180119
  5. BUDESONIDE. [Concomitant]
     Active Substance: BUDESONIDE
     Indication: NASOPHARYNGITIS
  6. ACARIZAX [Suspect]
     Active Substance: DERMATOPHAGOIDES FARINAE\DERMATOPHAGOIDES PTERONYSSINUS
     Indication: MITE ALLERGY

REACTIONS (7)
  - Cough [Unknown]
  - Musculoskeletal stiffness [Not Recovered/Not Resolved]
  - Body temperature increased [Unknown]
  - Headache [Recovered/Resolved]
  - Nasopharyngitis [Unknown]
  - C-reactive protein abnormal [Unknown]
  - Neck pain [Recovered/Resolved]

NARRATIVE: CASE EVENT DATE: 201801
